FAERS Safety Report 8136696 (Version 2)
Quarter: 2012Q4

REPORT INFORMATION
  Report Type: 
  Country: US (occurrence: US)
  Receive Date: 20110914
  Receipt Date: 20121005
  Transmission Date: 20130627
  Serious: Yes (Other)
  Sender: FDA-Public Use
  Company Number: US-RB-032102-11

PATIENT
  Sex: Male
  Weight: 3.09 kg

DRUGS (1)
  1. SUBOXONE [Suspect]
     Indication: PRODUCT USED FOR UNKNOWN INDICATION
     Dosage: 1 strip per day
     Route: 064
     Dates: start: 201005, end: 20110301

REACTIONS (6)
  - Weight decreased [Recovered/Resolved]
  - Screaming [Recovered/Resolved]
  - Restlessness [Recovered/Resolved]
  - Attention deficit/hyperactivity disorder [Unknown]
  - Foetal exposure during pregnancy [Recovered/Resolved]
  - Maternal drugs affecting foetus [None]
